FAERS Safety Report 9962623 (Version 1)
Quarter: 2014Q1

REPORT INFORMATION
  Report Type: Report from Study
  Country: US (occurrence: US)
  Receive Date: 20140305
  Receipt Date: 20140305
  Transmission Date: 20141002
  Serious: No
  Sender: FDA-Public Use
  Company Number: US-ABBVIE-13P-163-1114132-00

PATIENT
  Age: 62 Year
  Sex: Female

DRUGS (6)
  1. HUMIRA [Suspect]
     Indication: CROHN^S DISEASE
     Dosage: LOADING DOSE
     Dates: start: 20130612
  2. BENICAR [Concomitant]
     Indication: HYPERTENSION
  3. VITAMIN D NOS [Concomitant]
     Indication: CALCIUM DEFICIENCY
  4. ALENDRONATE [Concomitant]
     Indication: BONE DISORDER
  5. ALENDRONATE [Concomitant]
     Indication: OSTEOPENIA
  6. VITAMIN B-12 [Concomitant]
     Indication: VITAMIN B12 DEFICIENCY

REACTIONS (3)
  - Arthralgia [Not Recovered/Not Resolved]
  - Pain in extremity [Not Recovered/Not Resolved]
  - Pain in extremity [Not Recovered/Not Resolved]
